FAERS Safety Report 14305892 (Version 2)
Quarter: 2018Q1

REPORT INFORMATION
  Report Type: Report from Study
  Country: US (occurrence: US)
  Receive Date: 20171219
  Receipt Date: 20180109
  Transmission Date: 20180509
  Serious: Yes (Death)
  Sender: FDA-Public Use
  Company Number: US-ACTELION-A-US2017-163958

PATIENT
  Age: 69 Year
  Sex: Female

DRUGS (1)
  1. UPTRAVI [Suspect]
     Active Substance: SELEXIPAG
     Indication: PULMONARY ARTERIAL HYPERTENSION
     Dosage: 600 MCG, BID
     Route: 048
     Dates: start: 20171108, end: 20171206

REACTIONS (5)
  - Swelling [Unknown]
  - Flushing [Unknown]
  - Renal failure [Fatal]
  - Nausea [Unknown]
  - Headache [Unknown]
